FAERS Safety Report 6284961-4 (Version None)
Quarter: 2009Q3

REPORT INFORMATION
  Report Type: 
  Country: None (occurrence: None)
  Receive Date: 20090727
  Receipt Date: 20090427
  Transmission Date: 20100115
  Serious: Yes (Hospitalization)
  Sender: FDA-Public Use
  Company Number: AU-JNJFOC-20060803518

PATIENT
  Sex: Female
  Weight: 73 kg

DRUGS (31)
  1. GOLIMUMAB [Suspect]
     Route: 058
     Dates: start: 20060704
  2. GOLIMUMAB [Suspect]
     Route: 058
     Dates: start: 20060704
  3. GOLIMUMAB [Suspect]
     Route: 058
     Dates: start: 20060704
  4. GOLIMUMAB [Suspect]
     Route: 058
     Dates: start: 20060704
  5. GOLIMUMAB [Suspect]
     Route: 058
     Dates: start: 20060704
  6. GOLIMUMAB [Suspect]
     Indication: RHEUMATOID ARTHRITIS
     Route: 058
     Dates: start: 20060704
  7. METHOTREXATE [Suspect]
     Dosage: 8 CAPSULES  WEEK 15
     Route: 048
  8. METHOTREXATE [Suspect]
     Dosage: 8 CAPSULES  WEEK 14
     Route: 048
  9. METHOTREXATE [Suspect]
     Dosage: 8 CAPSULES  WEEK 13
     Route: 048
  10. METHOTREXATE [Suspect]
     Dosage: 8 CAPSULES  WEEK 12
     Route: 048
  11. METHOTREXATE [Suspect]
     Dosage: 8 CAPSULES  WEEK 11
     Route: 048
  12. METHOTREXATE [Suspect]
     Dosage: 8 CAPSULES  WEEK 10
     Route: 048
  13. METHOTREXATE [Suspect]
     Dosage: 8 CAPSULES  WEEK 9
     Route: 048
  14. METHOTREXATE [Suspect]
     Dosage: 8 CAPSULES  WEEK 8
     Route: 048
  15. METHOTREXATE [Suspect]
     Dosage: 8 CAPSULES  WEEK 7
     Route: 048
  16. METHOTREXATE [Suspect]
     Dosage: 8 CAPSULES  WEEK 6
     Route: 048
  17. METHOTREXATE [Suspect]
     Dosage: 8 CAPSULES  WEEK 5
     Route: 048
  18. METHOTREXATE [Suspect]
     Dosage: 8 CAPSULES  WEEK 4
     Route: 048
  19. METHOTREXATE [Suspect]
     Dosage: 8 CAPSULES  WEEK 3
     Route: 048
  20. METHOTREXATE [Suspect]
     Dosage: 8 CAPSULES  WEEK 2
     Route: 048
  21. METHOTREXATE [Suspect]
     Dosage: 8 CAPSULES  WEEK 1
     Route: 048
  22. METHOTREXATE [Suspect]
     Indication: RHEUMATOID ARTHRITIS
     Dosage: 8 CAPSULES WEEK 0
     Route: 048
  23. METHOTREXATE [Concomitant]
     Dosage: 8 CAPSULES  0-1 WEEK
     Route: 048
  24. METHOTREXATE [Concomitant]
     Dosage: 8 CAPSULES  0-2 WEEKS
     Route: 048
  25. METHOTREXATE [Concomitant]
     Dosage: 8 CAPSULES  0-3 WEEKS
     Route: 048
  26. FLIXOTIDE [Concomitant]
     Route: 055
  27. FOLIC ACID [Concomitant]
     Route: 048
  28. ISONIAZID [Concomitant]
     Route: 048
  29. PYRIDOXINE [Concomitant]
     Route: 048
  30. VENTOLIN [Concomitant]
     Route: 055
  31. ZOLOFT [Concomitant]
     Route: 048

REACTIONS (2)
  - LOWER RESPIRATORY TRACT INFECTION [None]
  - PULMONARY EMBOLISM [None]
